FAERS Safety Report 5020469-1 (Version None)
Quarter: 2006Q2

REPORT INFORMATION
  Report Type: 
  Country: None (occurrence: None)
  Receive Date: 20060602
  Receipt Date: 20060523
  Transmission Date: 20061013
  Serious: Yes (Other)
  Sender: FDA-Public Use
  Company Number: HQWYE524224MAY06

PATIENT
  Age: 35 Year
  Sex: Male

DRUGS (4)
  1. RAPAMUNE [Suspect]
     Indication: PROPHYLAXIS AGAINST TRANSPLANT REJECTION
  2. TACROLIMUS (TACROLIMUS) [Concomitant]
  3. MYCOPHENOLATE MOFETIL [Concomitant]
  4. CORTICOSTEROIDS (CORTICOSTEROIDS) [Concomitant]

REACTIONS (14)
  - ACUTE ABDOMEN [None]
  - COLITIS [None]
  - COMPLICATIONS OF TRANSPLANTED KIDNEY [None]
  - DIARRHOEA [None]
  - DRUG TOXICITY [None]
  - HEPATIC STEATOSIS [None]
  - ISCHAEMIC ULCER [None]
  - LARGE INTESTINAL ULCER [None]
  - LARGE INTESTINE PERFORATION [None]
  - LEUKOCYTOCLASTIC VASCULITIS [None]
  - MULTI-ORGAN FAILURE [None]
  - RESPIRATORY TRACT INFECTION [None]
  - SEPSIS [None]
  - TRANSPLANT FAILURE [None]
